FAERS Safety Report 8603058-9 (Version None)
Quarter: 2012Q3

REPORT INFORMATION
  Report Type: 
  Country: None (occurrence: None)
  Receive Date: 20120817
  Receipt Date: 20120711
  Transmission Date: 20120928
  Serious: No
  Sender: FDA-Public Use
  Company Number: US-GLAXOSMITHKLINE-A0984649A

PATIENT
  Age: 63 Year
  Sex: Male
  Weight: 90 kg

DRUGS (10)
  1. QUERCETIN [Concomitant]
  2. VOTRIENT [Suspect]
     Indication: PRODUCT USED FOR UNKNOWN INDICATION
     Dosage: 800MG PER DAY
     Route: 048
  3. PREDNISONE TAB [Concomitant]
  4. FLUDROCORTISONE ACETATE [Concomitant]
  5. VITAMIN B COMPLEX CAP [Concomitant]
  6. MULTI-VITAMIN [Concomitant]
  7. VITAMIN D [Concomitant]
  8. PANCREASE [Concomitant]
  9. AXIRON [Concomitant]
  10. ASCORBIC ACID [Concomitant]

REACTIONS (2)
  - FATIGUE [None]
  - DECREASED APPETITE [None]
